FAERS Safety Report 21136388 (Version 1)
Quarter: 2022Q3

REPORT INFORMATION
  Report Type: Spontaneous
  Country: FR (occurrence: FR)
  Receive Date: 20220727
  Receipt Date: 20220727
  Transmission Date: 20221027
  Serious: Yes (Other)
  Sender: FDA-Public Use
  Company Number: FR-BAYER-2022A100195

PATIENT
  Age: 64 Year
  Sex: Male

DRUGS (10)
  1. SORAFENIB [Suspect]
     Active Substance: SORAFENIB
     Indication: Hepatocellular carcinoma
     Dosage: UNK
  2. SORAFENIB [Suspect]
     Active Substance: SORAFENIB
     Indication: Hepatic cirrhosis
  3. SORAFENIB [Suspect]
     Active Substance: SORAFENIB
     Indication: Hepatitis C
  4. BEVACIZUMAB [Suspect]
     Active Substance: BEVACIZUMAB
     Indication: Hepatocellular carcinoma
     Dosage: UNK
  5. EVEROLIMUS [Concomitant]
     Active Substance: EVEROLIMUS
     Dosage: 5,1 NG/ML
  6. EVEROLIMUS [Concomitant]
     Active Substance: EVEROLIMUS
     Dosage: 6,1 NG/ML
  7. TACROLIMUS [Concomitant]
     Active Substance: TACROLIMUS
     Dosage: 3.7 NG/ML
  8. TACROLIMUS [Concomitant]
     Active Substance: TACROLIMUS
     Dosage: 5,3 NG/ML
  9. MYCOPHENOLIC ACID [Concomitant]
     Active Substance: MYCOPHENOLIC ACID
     Dosage: 1000 MG/DAY
  10. ATEZOLIZUMAB [Suspect]
     Active Substance: ATEZOLIZUMAB

REACTIONS (3)
  - Hepatocellular carcinoma [None]
  - Metastases to bone [None]
  - Drug intolerance [None]
